FAERS Safety Report 6223412-2 (Version None)
Quarter: 2009Q2

REPORT INFORMATION
  Report Type: 
  Country: None (occurrence: None)
  Receive Date: 20090609
  Receipt Date: 20090526
  Transmission Date: 20091009
  Serious: Yes (Hospitalization)
  Sender: FDA-Public Use
  Company Number: 1000006614

PATIENT
  Sex: Female

DRUGS (3)
  1. ESCITALOPRAM OXALATE [Suspect]
     Dosage: 28 DOSAGE FORMS (28 DOSAGE FORMS, ONCE), ORAL
     Route: 048
     Dates: start: 20090201, end: 20090201
  2. ESCITALOPRAM [Suspect]
     Dosage: 10 MG (10 MG, 1 IN 1  D), ORAL, 20 MG (20 MG, 1 IN 1 D), ORAL
     Route: 048
     Dates: start: 20090201, end: 20090101
  3. ESCITALOPRAM [Suspect]
     Dosage: 10 MG (10 MG, 1 IN 1  D), ORAL, 20 MG (20 MG, 1 IN 1 D), ORAL
     Route: 048
     Dates: start: 20090101

REACTIONS (2)
  - DISINHIBITION [None]
  - INTENTIONAL OVERDOSE [None]
